FAERS Safety Report 13724687 (Version 3)
Quarter: 2017Q4

REPORT INFORMATION
  Report Type: Report from Study
  Country: JP (occurrence: JP)
  Receive Date: 20170706
  Receipt Date: 20171109
  Transmission Date: 20180320
  Serious: Yes (Death)
  Sender: FDA-Public Use
  Company Number: JP-PFIZER INC-2017291557

PATIENT
  Age: 60 Year
  Sex: Male
  Weight: 73 kg

DRUGS (17)
  1. CYCLOPHOSPHAMIDE. [Concomitant]
     Active Substance: CYCLOPHOSPHAMIDE
     Dosage: 750 MG, SINGLE
     Route: 042
     Dates: start: 20161116, end: 20161116
  2. SANDIMMUNE [Concomitant]
     Active Substance: CYCLOSPORINE
     Dosage: 250 MG, UNK
     Route: 042
     Dates: start: 20161112, end: 20161231
  3. BAKTAR [Concomitant]
     Active Substance: SULFAMETHOXAZOLE\TRIMETHOPRIM
     Indication: ANTIFUNGAL PROPHYLAXIS
     Dosage: 3 TIMES PER WEEK
     Route: 048
     Dates: start: 20161202, end: 20161230
  4. CYCLOPHOSPHAMIDE. [Concomitant]
     Active Substance: CYCLOPHOSPHAMIDE
     Dosage: 1000 MG, SINGLE
     Route: 042
     Dates: start: 20161213, end: 20161213
  5. CYCLOPHOSPHAMIDE. [Concomitant]
     Active Substance: CYCLOPHOSPHAMIDE
     Dosage: UNK
     Route: 042
     Dates: start: 20161227, end: 20161227
  6. METHYLPREDNISOLONE. [Concomitant]
     Active Substance: METHYLPREDNISOLONE
     Dosage: 1000 MG, DAILY
     Route: 041
     Dates: start: 20161220, end: 20161222
  7. METHYLPREDNISOLONE. [Concomitant]
     Active Substance: METHYLPREDNISOLONE
     Dosage: 1000 MG, DAILY
     Route: 041
     Dates: start: 20161205, end: 20161207
  8. METHYLPREDNISOLONE. [Concomitant]
     Active Substance: METHYLPREDNISOLONE
     Dosage: 1000 MG, DAILY
     Route: 041
     Dates: start: 20161230, end: 20161231
  9. HALIZON [Concomitant]
     Active Substance: AMPHOTERICIN B
     Dosage: 4 ML, DAILY
     Route: 042
     Dates: start: 20161121, end: 20161231
  10. XELJANZ [Suspect]
     Active Substance: TOFACITINIB CITRATE
     Dosage: 5 MG, 2X/DAY
     Route: 048
     Dates: start: 20161122, end: 20161231
  11. DENOSINE [Concomitant]
     Active Substance: GANCICLOVIR
     Dosage: 350 MG, 2X/DAY
     Route: 042
     Dates: start: 20161222, end: 20161231
  12. EDIROL [Concomitant]
     Active Substance: ELDECALCITOL
     Dosage: 0.75 MG, UNK
     Route: 048
     Dates: start: 20161212, end: 20161231
  13. PREDONINE [Concomitant]
     Active Substance: PREDNISOLONE
     Dosage: 80 MG, DAILY
     Route: 048
     Dates: start: 20161112, end: 20161222
  14. METGLUCO [Concomitant]
     Active Substance: METFORMIN HYDROCHLORIDE
     Dosage: 250 MG, 1X/DAY
     Route: 048
     Dates: start: 20161213, end: 20161223
  15. CYCLOPHOSPHAMIDE. [Concomitant]
     Active Substance: CYCLOPHOSPHAMIDE
     Dosage: 750 MG, SINGLE
     Route: 042
     Dates: start: 20161130, end: 20161130
  16. PREDONINE [Concomitant]
     Active Substance: PREDNISOLONE
     Dosage: 70 MG, DAILY
     Route: 048
     Dates: start: 20161223, end: 20161229
  17. NEXIUM [Concomitant]
     Active Substance: ESOMEPRAZOLE MAGNESIUM
     Dosage: 20 MG, UNK
     Route: 048
     Dates: start: 20161121, end: 20161231

REACTIONS (2)
  - Interstitial lung disease [Fatal]
  - Condition aggravated [Fatal]
